FAERS Safety Report 25439981 (Version 1)
Quarter: 2025Q2

REPORT INFORMATION
  Report Type: Spontaneous
  Country: US (occurrence: None)
  Receive Date: 20250614
  Receipt Date: 20250614
  Transmission Date: 20250717
  Serious: Yes (Hospitalization)
  Sender: FDA-CTU
  Company Number: None

PATIENT
  Age: 58 Year
  Sex: Female
  Weight: 158.8 kg

DRUGS (1)
  1. MEGACE [Suspect]
     Active Substance: MEGESTROL ACETATE
     Dates: end: 20250607

REACTIONS (3)
  - Muscular weakness [None]
  - Pain in extremity [None]
  - Muscle strain [None]

NARRATIVE: CASE EVENT DATE: 20250608
